FAERS Safety Report 6028732-2 (Version None)
Quarter: 2009Q1

REPORT INFORMATION
  Report Type: 
  Country: None (occurrence: None)
  Receive Date: 20090102
  Receipt Date: 20081218
  Transmission Date: 20090719
  Serious: Yes (Death, Other)
  Sender: FDA-Public Use
  Company Number: 2008-04758

PATIENT
  Age: 33 Year
  Sex: Female

DRUGS (8)
  1. VELCADE [Suspect]
     Indication: HEPATOSPLENIC T-CELL LYMPHOMA
     Dosage: 1 MG/M2
  2. ADRIAMYCIN PFS [Suspect]
     Indication: HEPATOSPLENIC T-CELL LYMPHOMA
     Dosage: 75 MG/M2
  3. CYCLOPHOSPHAMIDE [Suspect]
     Indication: HEPATOSPLENIC T-CELL LYMPHOMA
     Dosage: 1200 MG/M2
  4. VINCRISTINE [Suspect]
     Indication: HEPATOSPLENIC T-CELL LYMPHOMA
     Dosage: 1.2 MG/M2
  5. BLEOMYCIN SULFATE [Suspect]
     Indication: HEPATOSPLENIC T-CELL LYMPHOMA
     Dosage: 15 MG
  6. PREDNISONE TAB [Suspect]
     Indication: HEPATOSPLENIC T-CELL LYMPHOMA
     Dosage: 60 MG/M2
  7. GEMZAR [Suspect]
     Indication: HEPATOSPLENIC T-CELL LYMPHOMA
  8. VINORELBINE TARTRATE [Suspect]
     Indication: HEPATOSPLENIC T-CELL LYMPHOMA

REACTIONS (6)
  - ABDOMINAL PAIN [None]
  - DISEASE COMPLICATION [None]
  - DISEASE PROGRESSION [None]
  - FEBRILE NEUTROPENIA [None]
  - HEPATOMEGALY [None]
  - SEPSIS [None]
